FAERS Safety Report 25416943 (Version 3)
Quarter: 2025Q3

REPORT INFORMATION
  Report Type: Spontaneous
  Country: JP (occurrence: JP)
  Receive Date: 20250610
  Receipt Date: 20250826
  Transmission Date: 20251021
  Serious: Yes (Hospitalization)
  Sender: NOVARTIS
  Company Number: JP-002147023-NVSJ2025JP006034

PATIENT
  Age: 76 Year
  Sex: Female

DRUGS (6)
  1. AFINITOR [Suspect]
     Active Substance: EVEROLIMUS
     Indication: Neuroendocrine tumour
     Route: 048
  2. AFINITOR [Suspect]
     Active Substance: EVEROLIMUS
     Route: 048
     Dates: start: 202404, end: 202406
  3. AFINITOR [Suspect]
     Active Substance: EVEROLIMUS
     Route: 048
     Dates: start: 202406
  4. AFINITOR [Suspect]
     Active Substance: EVEROLIMUS
     Route: 048
     Dates: start: 202502
  5. LUTATHERA [Suspect]
     Active Substance: LUTETIUM OXODOTREOTIDE LU-177
     Indication: Neuroendocrine tumour
     Route: 042
     Dates: start: 202406
  6. LUTATHERA [Suspect]
     Active Substance: LUTETIUM OXODOTREOTIDE LU-177
     Route: 042
     Dates: start: 202502, end: 202502

REACTIONS (5)
  - Disseminated intravascular coagulation [Recovering/Resolving]
  - Hepatic failure [Recovering/Resolving]
  - Mucosal inflammation [Recovered/Resolved]
  - Mucosal haemorrhage [Recovered/Resolved]
  - Inappropriate schedule of product administration [Unknown]

NARRATIVE: CASE EVENT DATE: 20240101
